FAERS Safety Report 5247574-9 (Version None)
Quarter: 2007Q1

REPORT INFORMATION
  Report Type: 
  Country: None (occurrence: None)
  Receive Date: 20070223
  Receipt Date: 20070223
  Transmission Date: 20070707
  Serious: No
  Sender: FDA-Public Use
  Company Number: None

PATIENT
  Age: 73 Year
  Sex: Female

DRUGS (13)
  1. MACRODANTIN [Suspect]
     Dates: start: 20040123
  2. NORVASC [Concomitant]
  3. ASPIRIN [Concomitant]
  4. TENORMIN [Concomitant]
  5. BUSPAR [Concomitant]
  6. CELBREX [Concomitant]
  7. PREMARIN [Concomitant]
  8. LASIX [Concomitant]
  9. MIRALAX [Concomitant]
  10. ACTONEL [Concomitant]
  11. COLACE [Concomitant]
  12. B12 [Concomitant]
  13. VITAMIN CAP [Concomitant]

REACTIONS (6)
  - ANOREXIA [None]
  - FATIGUE [None]
  - GLAUCOMA SURGERY [None]
  - JAUNDICE [None]
  - LIVER INJURY [None]
  - NAUSEA [None]
